FAERS Safety Report 10093032 (Version 1)
Quarter: 2014Q2

REPORT INFORMATION
  Report Type: Spontaneous
  Country: US (occurrence: US)
  Receive Date: 20140421
  Receipt Date: 20140421
  Transmission Date: 20141212
  Serious: No
  Sender: FDA-Public Use
  Company Number: US-SANOFI-AVENTIS-2013SA052312

PATIENT
  Age: 71 Year
  Sex: Female

DRUGS (3)
  1. ALLEGRA [Suspect]
     Indication: HYPERSENSITIVITY
     Route: 048
     Dates: start: 20130518
  2. BETAMETHASONE [Concomitant]
     Indication: ARTHRALGIA
     Dates: start: 20130515
  3. DEPO-MEDROL [Concomitant]

REACTIONS (2)
  - Heart rate increased [Recovered/Resolved]
  - Chest discomfort [Recovered/Resolved]
